FAERS Safety Report 8806786 (Version 2)
Quarter: 2014Q3

REPORT INFORMATION
  Report Type: Report from Study
  Country: US (occurrence: US)
  Receive Date: 20120925
  Receipt Date: 20140731
  Transmission Date: 20150326
  Serious: Yes (Death, Other)
  Sender: FDA-Public Use
  Company Number: US-ROCHE-1097555

PATIENT
  Sex: Male

DRUGS (1)
  1. AVASTIN [Suspect]
     Active Substance: BEVACIZUMAB
     Indication: SOFT TISSUE SARCOMA
     Dosage: ONE DOSE
     Route: 042
     Dates: start: 20070910

REACTIONS (3)
  - Pleural sarcoma [Unknown]
  - Haemorrhage [Unknown]
  - Metastatic neoplasm [Fatal]
